FAERS Safety Report 19932218 (Version 9)
Quarter: 2022Q2

REPORT INFORMATION
  Report Type: Report from Study
  Country: US (occurrence: US)
  Receive Date: 20211008
  Receipt Date: 20220617
  Transmission Date: 20220721
  Serious: Yes (Hospitalization, Other)
  Sender: FDA-Public Use
  Company Number: NVSC2021US227564

PATIENT
  Sex: Male

DRUGS (2)
  1. COSENTYX [Suspect]
     Active Substance: SECUKINUMAB
     Indication: Psoriasis
     Dosage: UNK, QMO
     Route: 058
     Dates: start: 202107
  2. COSENTYX [Suspect]
     Active Substance: SECUKINUMAB
     Indication: Psoriatic arthropathy

REACTIONS (18)
  - Carpal tunnel syndrome [Recovering/Resolving]
  - Postoperative wound infection [Not Recovered/Not Resolved]
  - Wound [Recovering/Resolving]
  - Localised infection [Recovering/Resolving]
  - Staphylococcal infection [Recovered/Resolved]
  - Fungal infection [Recovered/Resolved]
  - Cyst [Not Recovered/Not Resolved]
  - Bursitis [Not Recovered/Not Resolved]
  - Pain [Not Recovered/Not Resolved]
  - Skin discolouration [Not Recovered/Not Resolved]
  - Radiculopathy [Unknown]
  - Intervertebral disc protrusion [Unknown]
  - Condition aggravated [Unknown]
  - Peripheral swelling [Unknown]
  - Mobility decreased [Unknown]
  - Fall [Unknown]
  - Skin abrasion [Unknown]
  - Therapeutic product effect incomplete [Not Recovered/Not Resolved]

NARRATIVE: CASE EVENT DATE: 20210101
